FAERS Safety Report 9727461 (Version 1)
Quarter: 2013Q4

REPORT INFORMATION
  Report Type: Spontaneous
  Country: BR (occurrence: None)
  Receive Date: 20131127
  Receipt Date: 20131127
  Transmission Date: 20140711
  Serious: Yes (Hospitalization)
  Sender: FDA-Public Use
  Company Number: DSJ-2013-25598

PATIENT
  Age: 90 Year
  Sex: Female

DRUGS (1)
  1. BENICAR ANLO [Suspect]
     Indication: HYPERTENSION
     Route: 048
     Dates: end: 201310

REACTIONS (2)
  - Drug ineffective [None]
  - Erysipelas [None]
